FAERS Safety Report 18128809 (Version 1)
Quarter: 2020Q3

REPORT INFORMATION
  Report Type: Spontaneous
  Country: US (occurrence: US)
  Receive Date: 20200809
  Receipt Date: 20200809
  Transmission Date: 20201103
  Serious: Yes (Life-Threatening)
  Sender: FDA-Public Use
  Company Number: None

PATIENT
  Age: 57 Year
  Sex: Female
  Weight: 124.28 kg

DRUGS (2)
  1. DOVATO [Suspect]
     Active Substance: DOLUTEGRAVIR SODIUM\LAMIVUDINE
     Indication: HIV INFECTION
     Route: 048
     Dates: start: 20200610, end: 20200615
  2. JULUCA [Suspect]
     Active Substance: DOLUTEGRAVIR SODIUM\RILPIVIRINE HYDROCHLORIDE

REACTIONS (15)
  - Faeces discoloured [None]
  - Eye discharge [None]
  - Headache [None]
  - Pain in extremity [None]
  - Thrombosis [None]
  - Acne [None]
  - Eye disorder [None]
  - Bone pain [None]
  - Tooth loss [None]
  - Skin discolouration [None]
  - Tooth injury [None]
  - Palatal disorder [None]
  - Abdominal pain upper [None]
  - Diarrhoea [None]
  - Angular cheilitis [None]

NARRATIVE: CASE EVENT DATE: 20200629
